FAERS Safety Report 24929479 (Version 1)
Quarter: 2025Q1

REPORT INFORMATION
  Report Type: Spontaneous
  Country: US (occurrence: US)
  Receive Date: 20250205
  Receipt Date: 20250205
  Transmission Date: 20250409
  Serious: No
  Sender: SANOFI AVENTIS
  Company Number: US-SA-2024SA384908

PATIENT
  Age: 7 Year
  Sex: Female

DRUGS (1)
  1. MYOZYME [Suspect]
     Active Substance: ALGLUCOSIDASE ALFA

REACTIONS (1)
  - Complement factor C3 increased [Unknown]

NARRATIVE: CASE EVENT DATE: 20250115
